FAERS Safety Report 6006725-9 (Version None)
Quarter: 2008Q4

REPORT INFORMATION
  Report Type: 
  Country: None (occurrence: None)
  Receive Date: 20081217
  Receipt Date: 20081208
  Transmission Date: 20090506
  Serious: Yes (Hospitalization)
  Sender: FDA-Public Use
  Company Number: IE-WYE-H07231308

PATIENT
  Sex: Male

DRUGS (3)
  1. CORDARONE [Suspect]
     Route: 065
  2. CORDARONE [Suspect]
  3. CORDARONE [Suspect]

REACTIONS (1)
  - ATRIAL FIBRILLATION [None]
